FAERS Safety Report 7668036 (Version 4)
Quarter: 2013Q4

REPORT INFORMATION
  Report Type: Spontaneous
  Country: US (occurrence: US)
  Receive Date: 20101115
  Receipt Date: 20131209
  Transmission Date: 20140711
  Serious: Yes (Other)
  Sender: FDA-Public Use
  Company Number: US-BAYER-201040774NA

PATIENT
  Age: 29 Year
  Sex: Female
  Weight: 63.49 kg

DRUGS (3)
  1. YASMIN [Suspect]
     Indication: CONTRACEPTION
     Dosage: UNK
     Dates: start: 200112
  2. ADVIL [IBUPROFEN] [Concomitant]
  3. AMOXICILLIN W/CLAVULANATE POTASSIUM [Concomitant]

REACTIONS (2)
  - Gallbladder disorder [None]
  - Cholelithiasis [None]
